FAERS Safety Report 7980099-6 (Version None)
Quarter: 2011Q4

REPORT INFORMATION
  Report Type: 
  Country: None (occurrence: None)
  Receive Date: 20111205
  Receipt Date: 20111125
  Transmission Date: 20120403
  Serious: Yes (Other)
  Sender: FDA-Public Use
  Company Number: ACO_28266_2011

PATIENT
  Age: 54 Year
  Sex: Female

DRUGS (3)
  1. AMPYRA [Suspect]
     Dosage: 10MG, Q 12 HRS
     Dates: start: 20110601, end: 20111202
  2. SEROQUEL [Concomitant]
  3. CELEXA [Concomitant]

REACTIONS (2)
  - MANIA [None]
  - HALLUCINATION [None]
